FAERS Safety Report 5443016-9 (Version None)
Quarter: 2007Q3

REPORT INFORMATION
  Report Type: 
  Country: None (occurrence: None)
  Receive Date: 20070905
  Receipt Date: 20070827
  Transmission Date: 20080115
  Serious: Yes (Hospitalization, Other)
  Sender: FDA-Public Use
  Company Number: PHEH2007US02383

PATIENT
  Age: 64 Year
  Sex: Female

DRUGS (31)
  1. ZOMETA [Suspect]
     Indication: MULTIPLE MYELOMA
     Dosage: 4 MG Q4W
     Route: 042
     Dates: start: 20020215, end: 20020702
  2. ZOMETA [Suspect]
     Dosage: 4 MG, ONCE/SINGLE
     Dates: start: 20040410, end: 20040410
  3. PAMIDRONATE DISODIUM [Suspect]
     Indication: MULTIPLE MYELOMA
     Dosage: 90 MG Q4W
     Route: 042
     Dates: start: 19970709, end: 20070116
  4. PAMIDRONATE DISODIUM [Suspect]
     Dosage: 90 MG Q4W
     Dates: start: 20020731, end: 20030414
  5. PAMIDRONATE DISODIUM [Suspect]
     Dosage: 60 MG, ONCE/SINGLE
     Dates: start: 20030611, end: 20030611
  6. PAMIDRONATE DISODIUM [Suspect]
     Dosage: 90 MG, Q4W
     Dates: start: 20030816, end: 20031001
  7. PAMIDRONATE DISODIUM [Suspect]
     Dosage: 60 MG, Q4W
     Dates: start: 20031112, end: 20040113
  8. PAMIDRONATE DISODIUM [Suspect]
     Dosage: 60 MG, ONCE/SINGLE
     Dates: start: 20040505, end: 20040505
  9. PAMIDRONATE DISODIUM [Suspect]
     Dosage: 60 MG, Q4W
     Dates: start: 20040609, end: 20050309
  10. PAMIDRONATE DISODIUM [Suspect]
     Dosage: 60 MG Q4W
     Dates: start: 20050511, end: 20050608
  11. PAMIDRONATE DISODIUM [Suspect]
     Dosage: 90 MG, ONCE/SINGLE
     Dates: start: 20050705, end: 20050705
  12. PAMIDRONATE DISODIUM [Suspect]
     Dosage: 60 MG, Q4W
     Dates: start: 20050810, end: 20050907
  13. PAMIDRONATE DISODIUM [Suspect]
     Dosage: 60 MG Q6W
     Dates: start: 20070228
  14. NIFEREX FORTE [Concomitant]
  15. THALIDOMIDE [Concomitant]
     Indication: MULTIPLE MYELOMA
     Dosage: 200 MG, QD
     Dates: start: 20000801, end: 20020601
  16. THALIDOMIDE [Concomitant]
     Dosage: 100 MG, UNK
     Dates: start: 20020601
  17. ALLEGRA [Concomitant]
     Indication: SEASONAL ALLERGY
     Dosage: 180 MG, QD
  18. LASIX [Concomitant]
     Indication: OEDEMA
     Dosage: 40 MG, QD
     Dates: end: 20031101
  19. KLOR-CON [Concomitant]
     Indication: HYPOKALAEMIA
     Dosage: 40 MEQ, QD
     Dates: end: 20060208
  20. VITAMIN B6 [Concomitant]
     Dosage: 50 MG, QD
  21. MAGNESIUM SULFATE [Concomitant]
     Dosage: 64 MG, QD
  22. SENOKOT [Concomitant]
     Indication: CONSTIPATION
     Dosage: 2-4 TABS PRN
  23. MULTI-VITAMINS [Concomitant]
     Dosage: UNK, QD
  24. TYLENOL (CAPLET) [Concomitant]
     Dosage: 650 MG, PRN
     Dates: start: 20010401
  25. BENADRYL [Concomitant]
     Indication: ANTIALLERGIC THERAPY
     Dosage: 25 MG, UNK
     Dates: start: 20010401
  26. DEMEROL [Concomitant]
     Dosage: 25 MG, UNK
     Route: 042
     Dates: start: 20010401
  27. RHINOCORT [Concomitant]
     Indication: SEASONAL ALLERGY
     Dosage: 2 SPRAYS QD
     Route: 045
  28. ARICEPT [Concomitant]
  29. CYTOXAN [Concomitant]
     Indication: STEM CELL TRANSPLANT
     Dates: start: 19970101
  30. MELPHALAN [Concomitant]
     Indication: STEM CELL TRANSPLANT
     Dates: start: 19970101
  31. INTERFERON [Concomitant]
     Indication: MULTIPLE MYELOMA
     Dosage: 300000 U Q3W
     Dates: start: 19770801, end: 19980901

REACTIONS (30)
  - ANAEMIA [None]
  - BIOPSY BONE ABNORMAL [None]
  - BLOOD CREATININE INCREASED [None]
  - BONE DEBRIDEMENT [None]
  - BONE DISORDER [None]
  - BONE LESION [None]
  - COMPUTERISED TOMOGRAM ABNORMAL [None]
  - FISTULA [None]
  - GASTROINTESTINAL TUBE INSERTION [None]
  - HYPERCALCAEMIA [None]
  - HYPOGAMMAGLOBULINAEMIA [None]
  - HYPOTHYROIDISM [None]
  - MANDIBULECTOMY [None]
  - MULTIPLE MYELOMA [None]
  - MUSCLE SPASMS [None]
  - NECK MASS [None]
  - ORAL DISORDER [None]
  - OSTEOMYELITIS [None]
  - OSTEONECROSIS [None]
  - PERIPHERAL NERVE OPERATION [None]
  - PLASTIC SURGERY TO THE FACE [None]
  - PRIMARY SEQUESTRUM [None]
  - RENAL FAILURE [None]
  - RENAL FAILURE CHRONIC [None]
  - SOFT TISSUE INFECTION [None]
  - SPINAL OSTEOARTHRITIS [None]
  - STREPTOCOCCAL INFECTION [None]
  - SWELLING FACE [None]
  - UPPER RESPIRATORY TRACT INFECTION [None]
  - URINARY TRACT INFECTION [None]
